FAERS Safety Report 26001286 (Version 1)
Quarter: 2025Q4

REPORT INFORMATION
  Report Type: Spontaneous
  Country: CH (occurrence: CH)
  Receive Date: 20251105
  Receipt Date: 20251105
  Transmission Date: 20260117
  Serious: Yes (Other)
  Sender: VIIV
  Company Number: None

PATIENT
  Age: 33 Year
  Sex: Male

DRUGS (9)
  1. VOCABRIA [Interacting]
     Active Substance: CABOTEGRAVIR SODIUM
     Indication: HIV infection
     Dosage: 600 MG, Q2M
  2. VOCABRIA [Interacting]
     Active Substance: CABOTEGRAVIR SODIUM
  3. VOCABRIA [Interacting]
     Active Substance: CABOTEGRAVIR SODIUM
  4. RILPIVIRINE [Interacting]
     Active Substance: RILPIVIRINE
     Indication: HIV infection
     Dosage: 900 MG, Q2M
  5. WEGOVY [Interacting]
     Active Substance: SEMAGLUTIDE
     Indication: Product used for unknown indication
     Dosage: UNK
     Route: 065
  6. TADALAFIL [Concomitant]
     Active Substance: TADALAFIL
     Indication: Erectile dysfunction
     Dosage: UNK (AS NECESSARY)
     Route: 065
  7. PANTOZOL [Concomitant]
     Active Substance: PANTOPRAZOLE SODIUM
     Indication: Product used for unknown indication
     Dosage: 20 MG (AS NECESSARY)
     Route: 065
  8. TIZANIDINE [Concomitant]
     Active Substance: TIZANIDINE
     Indication: Product used for unknown indication
     Dosage: 4 MG (AS NECESSARY)
     Route: 065
  9. SILDENAFIL [Concomitant]
     Active Substance: SILDENAFIL
     Indication: Erectile dysfunction
     Dosage: UNK (AS NECESSARY)
     Route: 065

REACTIONS (3)
  - HIV viraemia [Unknown]
  - Treatment failure [Unknown]
  - Drug interaction [Unknown]

NARRATIVE: CASE EVENT DATE: 20250830
